FAERS Safety Report 8778040 (Version 1)
Quarter: 2012Q4

REPORT INFORMATION
  Report Type: 
  Country: CN (occurrence: CN)
  Receive Date: 20120912
  Receipt Date: 20120912
  Transmission Date: 20130627
  Serious: Yes (Other)
  Sender: FDA-Public Use
  Company Number: CN-BRISTOL-MYERS SQUIBB COMPANY-16891889

PATIENT
  Age: 28 Year
  Sex: Male
  Weight: 60 kg

DRUGS (11)
  1. METFORMIN HCL TABS [Suspect]
     Indication: DIABETES MELLITUS
     Route: 048
     Dates: start: 20090811, end: 20090813
  2. UNSPECIFIED INGREDIENT [Suspect]
  3. POTASSIUM CHLORIDE [Concomitant]
  4. POTASSIUM CITRATE [Concomitant]
  5. POTASSIUM CHLORIDE [Concomitant]
  6. VITAMIN C [Concomitant]
  7. VITAMIN B6 [Concomitant]
  8. AMINO ACIDS [Concomitant]
  9. CIMETIDINE INJ [Concomitant]
  10. VITAMIN [Concomitant]
  11. NOVOLIN [Concomitant]

REACTIONS (1)
  - Liver injury [Recovering/Resolving]
